FAERS Safety Report 10173720 (Version 2)
Quarter: 2014Q3

REPORT INFORMATION
  Report Type: Spontaneous
  Country: US (occurrence: US)
  Receive Date: 20140515
  Receipt Date: 20140811
  Transmission Date: 20150326
  Serious: No
  Sender: FDA-Public Use
  Company Number: US-TEVA-473112USA

PATIENT
  Age: 66 Year
  Sex: Female

DRUGS (3)
  1. PROGESTERONE. [Suspect]
     Active Substance: PROGESTERONE
     Dates: start: 201310, end: 201403
  2. FISH OIL [Concomitant]
     Active Substance: FISH OIL
  3. VITAMINS [Concomitant]
     Active Substance: VITAMINS

REACTIONS (9)
  - Hypersensitivity [Recovering/Resolving]
  - Menstrual disorder [Recovering/Resolving]
  - Lip dry [Recovering/Resolving]
  - Oral fungal infection [Recovering/Resolving]
  - Breast tenderness [Recovering/Resolving]
  - Lip exfoliation [Recovering/Resolving]
  - Sensory disturbance [Recovering/Resolving]
  - Menorrhagia [Recovering/Resolving]
  - Gingival bleeding [Recovering/Resolving]

NARRATIVE: CASE EVENT DATE: 201310
